FAERS Safety Report 24120939 (Version 1)
Quarter: 2024Q3

REPORT INFORMATION
  Report Type: Spontaneous
  Country: ZW (occurrence: ZW)
  Receive Date: 20240722
  Receipt Date: 20240722
  Transmission Date: 20241016
  Serious: Yes (Other)
  Sender: MYLAN
  Company Number: ZW-MYLANLABS-2024M1068078

PATIENT
  Age: 29 Year
  Sex: Female

DRUGS (6)
  1. EFAVIRENZ\LAMIVUDINE\TENOFOVIR DISOPROXIL FUMARATE [Suspect]
     Active Substance: EFAVIRENZ\LAMIVUDINE\TENOFOVIR DISOPROXIL FUMARATE
     Indication: HIV infection
     Dosage: UNK
     Route: 065
     Dates: start: 201706, end: 202006
  2. DOLUTEGRAVIR [Interacting]
     Active Substance: DOLUTEGRAVIR
     Indication: HIV infection
     Dosage: 50 MILLIGRAM
     Route: 065
     Dates: start: 202008
  3. RIFAMPIN [Interacting]
     Active Substance: RIFAMPIN
     Indication: Pulmonary tuberculosis
     Dosage: UNK
     Route: 065
     Dates: start: 202008
  4. ABACAVIR SULFATE\DOLUTEGRAVIR SODIUM\LAMIVUDINE [Concomitant]
     Active Substance: ABACAVIR SULFATE\DOLUTEGRAVIR SODIUM\LAMIVUDINE
     Indication: HIV infection
     Dosage: UNK
     Route: 065
     Dates: start: 202008
  5. ABACAVIR\LAMIVUDINE [Concomitant]
     Active Substance: ABACAVIR\LAMIVUDINE
     Indication: HIV infection
     Dosage: UNK
     Route: 065
     Dates: start: 202006, end: 202008
  6. ATAZANAVIR\RITONAVIR [Concomitant]
     Active Substance: ATAZANAVIR\RITONAVIR
     Indication: HIV infection
     Dosage: UNK
     Route: 065
     Dates: start: 202006, end: 202008

REACTIONS (3)
  - Treatment failure [Unknown]
  - Drug interaction [Unknown]
  - Drug resistance mutation [Unknown]
